FAERS Safety Report 11698404 (Version 1)
Quarter: 2015Q4

REPORT INFORMATION
  Report Type: Spontaneous
  Country: US (occurrence: US)
  Receive Date: 20151104
  Receipt Date: 20151104
  Transmission Date: 20160304
  Serious: No
  Sender: FDA-Public Use
  Company Number: US-ELI_LILLY_AND_COMPANY-US201101000047

PATIENT
  Age: 68 Year
  Sex: Female

DRUGS (1)
  1. FORTEO [Suspect]
     Active Substance: TERIPARATIDE
     Indication: OSTEOPOROSIS
     Dosage: 20 UG, DAILY (1/D)

REACTIONS (9)
  - Myalgia [Unknown]
  - Nausea [Unknown]
  - Migraine with aura [Unknown]
  - Migraine [Unknown]
  - Injection site erythema [Unknown]
  - Dizziness [Unknown]
  - Fatigue [Unknown]
  - Injection site bruising [Unknown]
  - Dysphonia [Unknown]
